FAERS Safety Report 11918001 (Version 2)
Quarter: 2018Q2

REPORT INFORMATION
  Report Type: Spontaneous
  Country: IT (occurrence: IT)
  Receive Date: 20160114
  Receipt Date: 20180613
  Transmission Date: 20180711
  Serious: Yes (Other)
  Sender: FDA-Public Use
  Company Number: PHHY2016IT001960

PATIENT
  Age: 43 Year
  Sex: Male
  Weight: 75 kg

DRUGS (14)
  1. VORICONAZOLE. [Interacting]
     Active Substance: VORICONAZOLE
     Dosage: 100 MG, BID
     Route: 048
  2. PREGABALIN. [Interacting]
     Active Substance: PREGABALIN
     Indication: NEUROPATHY PERIPHERAL
     Route: 065
  3. VORICONAZOLE. [Interacting]
     Active Substance: VORICONAZOLE
     Indication: RENAL ABSCESS
     Dosage: 300 MG, BID
     Route: 042
  4. DELORAZEPAM [Interacting]
     Active Substance: DELORAZEPAM
     Indication: HALLUCINATION, AUDITORY
     Dosage: 1 MG, QD
     Route: 048
  5. TRAMADOL. [Interacting]
     Active Substance: TRAMADOL
     Indication: PRODUCT USED FOR UNKNOWN INDICATION
     Route: 065
  6. RALTEGRAVIR. [Interacting]
     Active Substance: RALTEGRAVIR
     Indication: CEREBRAL TOXOPLASMOSIS
     Route: 065
  7. ATOVAQUONE. [Interacting]
     Active Substance: ATOVAQUONE
     Indication: CEREBRAL TOXOPLASMOSIS
     Route: 065
  8. AZITHROMYCIN ANHYDROUS. [Suspect]
     Active Substance: AZITHROMYCIN ANHYDROUS
     Indication: PRODUCT USED FOR UNKNOWN INDICATION
     Route: 065
  9. VORICONAZOLE. [Interacting]
     Active Substance: VORICONAZOLE
     Dosage: 200 MG, BID
     Route: 048
  10. HALOPERIDOL. [Interacting]
     Active Substance: HALOPERIDOL
     Indication: HALLUCINATION, AUDITORY
     Dosage: 1 MG, TID
     Route: 048
  11. EMTRICITABINE W/TENOFOVIR [Interacting]
     Active Substance: EMTRICITABINE\TENOFOVIR DISOPROXIL
     Indication: PRODUCT USED FOR UNKNOWN INDICATION
     Route: 065
  12. PANTOPRAZOLE [Interacting]
     Active Substance: PANTOPRAZOLE
     Indication: PRODUCT USED FOR UNKNOWN INDICATION
     Dosage: UNK
     Route: 065
  13. VORICONAZOLE. [Interacting]
     Active Substance: VORICONAZOLE
     Indication: ASPERGILLUS INFECTION
     Dosage: 450 MG, BID
     Route: 042
  14. VORICONAZOLE. [Interacting]
     Active Substance: VORICONAZOLE
     Dosage: 250 MG, BID
     Route: 048

REACTIONS (2)
  - Hepatotoxicity [Recovered/Resolved]
  - Drug interaction [Unknown]
